FAERS Safety Report 21862161 (Version 5)
Quarter: 2024Q3

REPORT INFORMATION
  Report Type: Report from Study
  Country: US (occurrence: US)
  Receive Date: 20230113
  Receipt Date: 20240801
  Transmission Date: 20241017
  Serious: Yes (Hospitalization, Other)
  Sender: ABBVIE
  Company Number: US-ABBVIE-4268957

PATIENT
  Age: 73 Year
  Sex: Female

DRUGS (6)
  1. SKYRIZI [Suspect]
     Active Substance: RISANKIZUMAB-RZAA
     Indication: Psoriasis
     Dosage: FORM STRENGTH: 150 MILLIGRAM
     Route: 058
     Dates: start: 20220927
  2. SKYRIZI [Suspect]
     Active Substance: RISANKIZUMAB-RZAA
     Indication: Psoriasis
     Dosage: FORM STRENGTH: 150 MILLIGRAM
     Route: 058
  3. COVID-19 VACCINE NOS [Suspect]
     Active Substance: COVID-19 VACCINE
     Indication: COVID-19 immunisation
     Dosage: FREQUENCY: ONE TIME ONCE
     Route: 030
  4. COVID-19 VACCINE NOS [Suspect]
     Active Substance: COVID-19 VACCINE
     Indication: COVID-19 immunisation
     Dosage: FREQUENCY: ONE TIME ONCE; SECOND DOSE
     Route: 030
  5. BUSPIRONE [Concomitant]
     Active Substance: BUSPIRONE HYDROCHLORIDE
     Indication: Product used for unknown indication
  6. FLAGYL [Concomitant]
     Active Substance: METRONIDAZOLE\METRONIDAZOLE HYDROCHLORIDE
     Indication: Product used for unknown indication

REACTIONS (22)
  - Influenza [Recovered/Resolved]
  - Ulcer [Unknown]
  - COVID-19 [Recovered/Resolved]
  - Chest pain [Recovered/Resolved]
  - Anaemia [Not Recovered/Not Resolved]
  - Tinnitus [Not Recovered/Not Resolved]
  - Alopecia [Not Recovered/Not Resolved]
  - Constipation [Unknown]
  - Headache [Unknown]
  - Psoriasis [Not Recovered/Not Resolved]
  - Nervousness [Unknown]
  - Anxiety [Not Recovered/Not Resolved]
  - Psoriasis [Recovering/Resolving]
  - Pain [Unknown]
  - Urticaria [Unknown]
  - Illness [Recovering/Resolving]
  - Renal failure [Unknown]
  - Lower limb fracture [Unknown]
  - Breast cancer female [Unknown]
  - Hypothyroidism [Unknown]
  - Blood pressure decreased [Unknown]
  - Breast mass [Unknown]

NARRATIVE: CASE EVENT DATE: 20221201
